FAERS Safety Report 9125499 (Version 2)
Quarter: 2013Q2

REPORT INFORMATION
  Report Type: Spontaneous
  Country: US (occurrence: US)
  Receive Date: 20130117
  Receipt Date: 20130423
  Transmission Date: 20140414
  Serious: Yes (Other)
  Sender: FDA-Public Use
  Company Number: US-BRISTOL-MYERS SQUIBB COMPANY-17214255

PATIENT
  Age: 53 Year
  Sex: Male

DRUGS (3)
  1. YERVOY [Suspect]
     Indication: MALIGNANT MELANOMA
     Dosage: 4 WEEKS
     Route: 042
     Dates: start: 20121211
  2. MORPHINE SULFATE [Concomitant]
  3. VEMURAFENIB [Concomitant]

REACTIONS (2)
  - Infusion related reaction [Unknown]
  - Rash generalised [Unknown]
